FAERS Safety Report 9932076 (Version 1)
Quarter: 2014Q1

REPORT INFORMATION
  Report Type: Spontaneous
  Country: US (occurrence: US)
  Receive Date: 20140228
  Receipt Date: 20140228
  Transmission Date: 20141002
  Serious: No
  Sender: FDA-Public Use
  Company Number: US-ABBVIE-13P-163-1129467-00

PATIENT
  Age: 72 Year
  Sex: Male
  Weight: 92.16 kg

DRUGS (7)
  1. ANDROGEL [Suspect]
     Indication: BLOOD TESTOSTERONE DECREASED
     Dosage: ONE PUMP DAILY AFTER SHOWER
     Route: 061
     Dates: start: 20130417
  2. DILTIAZEM [Concomitant]
     Indication: ARRHYTHMIA
  3. ATENOLOL [Concomitant]
     Indication: BLOOD PRESSURE
  4. METFORMIN [Concomitant]
     Indication: DIABETES MELLITUS
  5. VITAMIN D [Concomitant]
     Indication: PRODUCT USED FOR UNKNOWN INDICATION
  6. OTHER UNKNOWN VITAMINS [Concomitant]
     Indication: PRODUCT USED FOR UNKNOWN INDICATION
  7. OTHER UNKNOWN SUPPLEMENTS [Concomitant]
     Indication: PRODUCT USED FOR UNKNOWN INDICATION

REACTIONS (3)
  - Arthralgia [Not Recovered/Not Resolved]
  - Pain in extremity [Not Recovered/Not Resolved]
  - Pollakiuria [Not Recovered/Not Resolved]
